FAERS Safety Report 23134099 (Version 1)
Quarter: 2023Q4

REPORT INFORMATION
  Report Type: Spontaneous
  Country: RO (occurrence: RO)
  Receive Date: 20231101
  Receipt Date: 20231101
  Transmission Date: 20240110
  Serious: Yes (Other)
  Sender: FDA-Public Use
  Company Number: RO-BRISTOL-MYERS SQUIBB COMPANY-2023-154570

PATIENT
  Age: 65 Year
  Sex: Female

DRUGS (2)
  1. NIVOLUMAB [Suspect]
     Active Substance: NIVOLUMAB
     Indication: Nodular melanoma
     Dosage: DOSE: 240 MG; FREQ: EVERY 2 WEEKS
     Route: 042
     Dates: start: 202006
  2. NIVOLUMAB [Suspect]
     Active Substance: NIVOLUMAB
     Indication: Malignant melanoma

REACTIONS (5)
  - Dyspnoea [Unknown]
  - Fatigue [Unknown]
  - General physical condition [Unknown]
  - Exophthalmos [Unknown]
  - Immune-mediated lung disease [Unknown]
